FAERS Safety Report 4618225-9 (Version None)
Quarter: 2005Q1

REPORT INFORMATION
  Report Type: 
  Country: None (occurrence: None)
  Receive Date: 20050324
  Receipt Date: 20050315
  Transmission Date: 20050727
  Serious: Yes (Other)
  Sender: FDA-Public Use
  Company Number: DE-ABBOTT-05P-062-0294375-00

PATIENT
  Sex: Female
  Weight: 57 kg

DRUGS (4)
  1. HUMIRA [Suspect]
     Indication: RHEUMATOID ARTHRITIS
     Route: 058
     Dates: start: 20040211, end: 20050301
  2. NSAR [Concomitant]
     Indication: RHEUMATOID ARTHRITIS
     Route: 048
  3. PREDNISONE [Concomitant]
     Indication: RHEUMATOID ARTHRITIS
     Route: 048
  4. PREDNISONE [Concomitant]
     Indication: SARCOIDOSIS
     Dosage: SLOWLY DECREASED
     Route: 048

REACTIONS (3)
  - ALPHA HAEMOLYTIC STREPTOCOCCAL INFECTION [None]
  - DRUG INEFFECTIVE [None]
  - PULMONARY SARCOIDOSIS [None]
